FAERS Safety Report 8191783-6 (Version None)
Quarter: 2012Q1

REPORT INFORMATION
  Report Type: 
  Country: None (occurrence: None)
  Receive Date: 20120307
  Receipt Date: 20120221
  Transmission Date: 20120608
  Serious: Yes (Other)
  Sender: FDA-Public Use
  Company Number: CHPA2012US002617

PATIENT
  Age: 44 Year
  Sex: Female

DRUGS (1)
  1. EXCEDRIN (MIGRAINE) [Suspect]
     Indication: HEADACHE
     Dosage: 2 DF, 1-2 TIMES PER DAY AS NEEDED
     Route: 048

REACTIONS (3)
  - OVERDOSE [None]
  - ABDOMINAL DISCOMFORT [None]
  - PAIN [None]
